FAERS Safety Report 9050421 (Version 1)
Quarter: 2013Q1

REPORT INFORMATION
  Report Type: Spontaneous
  Country: US (occurrence: US)
  Receive Date: 20130205
  Receipt Date: 20130205
  Transmission Date: 20140127
  Serious: No
  Sender: FDA-Public Use
  Company Number: US-PFIZER INC-2013042305

PATIENT
  Age: 50 Year
  Sex: Female
  Weight: 69.38 kg

DRUGS (2)
  1. PROVERA [Suspect]
     Indication: MENSTRUAL DISORDER
     Dosage: 10 MG, 1X/DAY
     Route: 048
     Dates: start: 20121005, end: 20121106
  2. LEVOTHYROXINE [Concomitant]
     Route: 048

REACTIONS (6)
  - Migraine [Unknown]
  - Muscle spasms [Unknown]
  - Insomnia [Unknown]
  - Back pain [Unknown]
  - Pelvic pain [Unknown]
  - Adenomyosis [Unknown]
